FAERS Safety Report 11675599 (Version 1)
Quarter: 2015Q4

REPORT INFORMATION
  Report Type: Spontaneous
  Country: US (occurrence: US)
  Receive Date: 20151027
  Receipt Date: 20151027
  Transmission Date: 20160304
  Serious: No
  Sender: FDA-Public Use
  Company Number: US-ELI_LILLY_AND_COMPANY-US201008000490

PATIENT
  Sex: Female
  Weight: 68.48 kg

DRUGS (3)
  1. FORTEO [Suspect]
     Active Substance: TERIPARATIDE
     Indication: OSTEOPOROSIS
     Dosage: 20 UG, DAILY (1/D)
     Dates: end: 20100731
  2. VITAMIN E /001105/ [Concomitant]
     Dosage: UNK, UNKNOWN
  3. FISH OIL [Concomitant]
     Active Substance: FISH OIL
     Dosage: UNK, UNKNOWN

REACTIONS (15)
  - Weight increased [Not Recovered/Not Resolved]
  - Asthenia [Unknown]
  - Blood calcium increased [Unknown]
  - Muscular weakness [Unknown]
  - Myalgia [Unknown]
  - High density lipoprotein increased [Unknown]
  - Fatigue [Recovered/Resolved]
  - Blood cholesterol increased [Unknown]
  - Arthralgia [Unknown]
  - Anxiety [Unknown]
  - LDL/HDL ratio decreased [Unknown]
  - Blood homocysteine increased [Unknown]
  - Low density lipoprotein increased [Unknown]
  - Joint stiffness [Recovering/Resolving]
  - Musculoskeletal stiffness [Unknown]
